FAERS Safety Report 6734338-X (Version None)
Quarter: 2010Q2

REPORT INFORMATION
  Report Type: 
  Country: None (occurrence: None)
  Receive Date: 20100520
  Receipt Date: 20100510
  Transmission Date: 20101027
  Serious: Yes (Hospitalization, Other)
  Sender: FDA-Public Use
  Company Number: US-BAXTER-2010BH002831

PATIENT
  Sex: Male
  Weight: 74 kg

DRUGS (2)
  1. DIANEAL [Suspect]
     Indication: PERITONEAL DIALYSIS
     Route: 033
     Dates: start: 20080229, end: 20100101
  2. DIANEAL [Suspect]
     Route: 033
     Dates: start: 20080229, end: 20100101

REACTIONS (6)
  - ABDOMINAL DISTENSION [None]
  - DISCOMFORT [None]
  - DYSPNOEA [None]
  - HEPATITIS C [None]
  - HEPATOMEGALY [None]
  - LABORATORY TEST ABNORMAL [None]
